FAERS Safety Report 20148937 (Version 1)
Quarter: 2021Q4

REPORT INFORMATION
  Report Type: Report from Study
  Country: ZA (occurrence: ZA)
  Receive Date: 20211204
  Receipt Date: 20211204
  Transmission Date: 20220303
  Serious: Yes (Hospitalization)
  Sender: FDA-Public Use
  Company Number: ZA-NOVARTISPH-NVSC2021ZA272993

PATIENT
  Sex: Female

DRUGS (1)
  1. COSENTYX [Suspect]
     Active Substance: SECUKINUMAB
     Indication: Ankylosing spondylitis
     Dosage: 150 MG, QMO
     Route: 058
     Dates: start: 20210928

REACTIONS (3)
  - Infection [Unknown]
  - Movement disorder [Unknown]
  - Influenza like illness [Recovered/Resolved]
